FAERS Safety Report 9146873 (Version 1)
Quarter: 2013Q1

REPORT INFORMATION
  Report Type: Spontaneous
  Country: US (occurrence: None)
  Receive Date: 20130228
  Receipt Date: 20130228
  Transmission Date: 20140127
  Serious: Yes (Hospitalization)
  Sender: FDA-Public Use
  Company Number: None

PATIENT
  Age: 28 Year
  Sex: Male
  Weight: 95.5 kg

DRUGS (1)
  1. PROPECIA [Suspect]
     Dosage: 1MG EVERY DAY MOUTH
     Route: 048
     Dates: start: 20111101, end: 20120401

REACTIONS (3)
  - Abdominal pain lower [None]
  - Groin pain [None]
  - Testicular pain [None]
